FAERS Safety Report 11333202 (Version 1)
Quarter: 2015Q3

REPORT INFORMATION
  Report Type: Spontaneous
  Country: US (occurrence: US)
  Receive Date: 20150803
  Receipt Date: 20150803
  Transmission Date: 20151125
  Serious: Yes (Hospitalization)
  Sender: FDA-Public Use
  Company Number: US-ELI_LILLY_AND_COMPANY-US200708001074

PATIENT
  Age: 43 Year
  Sex: Male
  Weight: 84.35 kg

DRUGS (3)
  1. ZYPREXA [Suspect]
     Active Substance: OLANZAPINE
     Indication: SCHIZOPHRENIA
     Dosage: 10 MG, UNK
     Dates: start: 2000, end: 2006
  2. ZYPREXA [Suspect]
     Active Substance: OLANZAPINE
     Dosage: 20 MG, UNK
     Dates: start: 2005, end: 2006
  3. ZYPREXA [Suspect]
     Active Substance: OLANZAPINE
     Dosage: 40 MG, UNK
     Dates: start: 2006

REACTIONS (3)
  - Cerebrovascular accident [Unknown]
  - Prescribed overdose [Not Recovered/Not Resolved]
  - Type 2 diabetes mellitus [Not Recovered/Not Resolved]

NARRATIVE: CASE EVENT DATE: 20010304
